FAERS Safety Report 5041856-1 (Version None)
Quarter: 2006Q2

REPORT INFORMATION
  Report Type: 
  Country: None (occurrence: None)
  Receive Date: 20060627
  Receipt Date: 20060525
  Transmission Date: 20061013
  Serious: Yes (Other)
  Sender: FDA-Public Use
  Company Number: 2006030416

PATIENT
  Age: 52 Year
  Sex: Female
  Weight: 102.9665 kg

DRUGS (3)
  1. BEXTRA [Suspect]
     Indication: ILL-DEFINED DISORDER
     Dosage: 20 MG (20 MG, 1 IN 1 D)
     Dates: start: 20041001
  2. SYNTHROID [Concomitant]
  3. XANAX [Concomitant]

REACTIONS (4)
  - ACTINIC KERATOSIS [None]
  - PITYRIASIS ROSEA [None]
  - STEVENS-JOHNSON SYNDROME [None]
  - VIRAL SKIN INFECTION [None]
